FAERS Safety Report 8286669-2 (Version None)
Quarter: 2012Q2

REPORT INFORMATION
  Report Type: 
  Country: None (occurrence: None)
  Receive Date: 20120416
  Receipt Date: 20120404
  Transmission Date: 20120825
  Serious: Yes (Hospitalization)
  Sender: FDA-Public Use
  Company Number: AU-JNJFOC-20120402969

PATIENT
  Sex: Female

DRUGS (3)
  1. REMICADE [Suspect]
     Indication: ANKYLOSING SPONDYLITIS
     Route: 042
     Dates: start: 20120404
  2. REMICADE [Suspect]
     Dosage: APPROX. 4 YEARS AGO
     Route: 042
  3. REMICADE [Suspect]
     Route: 042
     Dates: start: 20110101

REACTIONS (4)
  - PRURITUS [None]
  - SYSTEMIC LUPUS ERYTHEMATOSUS [None]
  - INFUSION RELATED REACTION [None]
  - SHOCK [None]
